FAERS Safety Report 15889026 (Version 1)
Quarter: 2019Q1

REPORT INFORMATION
  Report Type: Spontaneous
  Country: US (occurrence: US)
  Receive Date: 20190129
  Receipt Date: 20190129
  Transmission Date: 20190417
  Serious: Yes (Hospitalization)
  Sender: FDA-Public Use
  Company Number: None

PATIENT
  Age: 81 Year
  Sex: Male

DRUGS (22)
  1. ATORVASTATIN [Concomitant]
     Active Substance: ATORVASTATIN
  2. LANTUS [Concomitant]
     Active Substance: INSULIN GLARGINE
  3. LEVOTHRYOXINE [Concomitant]
     Active Substance: LEVOTHYROXINE
  4. LIPITOR [Concomitant]
     Active Substance: ATORVASTATIN CALCIUM
  5. METOPROLOL. [Concomitant]
     Active Substance: METOPROLOL
  6. MYCOPHENOLATE [Concomitant]
     Active Substance: MYCOPHENOLIC ACID
  7. TRICOR [Concomitant]
     Active Substance: FENOFIBRATE
  8. CARVEDILOL. [Concomitant]
     Active Substance: CARVEDILOL
  9. LIDO/PRILOCN [Concomitant]
  10. ASPIRIN. [Concomitant]
     Active Substance: ASPIRIN
  11. AVODART [Concomitant]
     Active Substance: DUTASTERIDE
  12. ALLOPURINOL. [Concomitant]
     Active Substance: ALLOPURINOL
  13. FLUOXETINE [Concomitant]
     Active Substance: FLUOXETINE HYDROCHLORIDE
  14. PANTOPRAZOLE [Concomitant]
     Active Substance: PANTOPRAZOLE
  15. TAMSULOSIN [Concomitant]
     Active Substance: TAMSULOSIN
  16. DIGOXIN. [Concomitant]
     Active Substance: DIGOXIN
  17. SILDENAFIL. [Suspect]
     Active Substance: SILDENAFIL
     Indication: PULMONARY ARTERIAL HYPERTENSION
     Route: 048
     Dates: start: 20160121
  18. DUTASTERIDE. [Concomitant]
     Active Substance: DUTASTERIDE
  19. FUROSEMIDE. [Concomitant]
     Active Substance: FUROSEMIDE
  20. TACROLIMUS. [Concomitant]
     Active Substance: TACROLIMUS
  21. AMITRIPTYLIN [Concomitant]
     Active Substance: AMITRIPTYLINE
  22. HYDRALAZINE [Concomitant]
     Active Substance: HYDRALAZINE HYDROCHLORIDE

REACTIONS (1)
  - Cholecystectomy [None]

NARRATIVE: CASE EVENT DATE: 20190117
